FAERS Safety Report 5292610-7 (Version None)
Quarter: 2007Q2

REPORT INFORMATION
  Report Type: 
  Country: None (occurrence: None)
  Receive Date: 20070404
  Receipt Date: 20070124
  Transmission Date: 20071010
  Serious: Yes (Death)
  Sender: FDA-Public Use
  Company Number: 2006SP008889

PATIENT
  Age: 68 Year
  Sex: Male
  Weight: 48 kg

DRUGS (5)
  1. TEMODAL [Suspect]
     Indication: GLIOBLASTOMA MULTIFORME
     Dosage: 75 MG/M2; QD; PO
     Route: 048
     Dates: start: 20060921, end: 20061016
  2. DECADRON [Suspect]
     Indication: GLIOBLASTOMA MULTIFORME
     Dosage: ; PO
     Route: 048
     Dates: start: 20060814, end: 20061112
  3. DEPAKENE [Concomitant]
  4. PERDIPINE-LA [Concomitant]
  5. NEW LECICARBON [Concomitant]

REACTIONS (4)
  - BRONCHOPULMONARY ASPERGILLOSIS [None]
  - CONDITION AGGRAVATED [None]
  - IMMUNODEFICIENCY [None]
  - NO THERAPEUTIC RESPONSE [None]
